FAERS Safety Report 5788843-3 (Version None)
Quarter: 2008Q2

REPORT INFORMATION
  Report Type: 
  Country: None (occurrence: None)
  Receive Date: 20080626
  Receipt Date: 20071113
  Transmission Date: 20081010
  Serious: No
  Sender: FDA-Public Use
  Company Number: US-ASTRAZENECA-2007UW26291

PATIENT
  Age: 59 Year
  Sex: Female
  Weight: 90.7 kg

DRUGS (4)
  1. PULMICORT RESPULES [Suspect]
     Indication: SINUSITIS
     Route: 055
     Dates: start: 20071001, end: 20071112
  2. PULMICORT RESPULES [Suspect]
     Indication: RHINITIS
     Route: 055
     Dates: start: 20071001, end: 20071112
  3. ADVAIR DISKUS 100/50 [Concomitant]
  4. METOPROLOL [Concomitant]

REACTIONS (2)
  - COUGH [None]
  - DYSPNOEA [None]
